FAERS Safety Report 5138985-0 (Version None)
Quarter: 2006Q4

REPORT INFORMATION
  Report Type: 
  Country: None (occurrence: None)
  Receive Date: 20061030
  Receipt Date: 20060530
  Transmission Date: 20070319
  Serious: No
  Sender: FDA-Public Use
  Company Number: US-GLAXOSMITHKLINE-A0607283A

PATIENT
  Age: 64 Year
  Sex: Female

DRUGS (5)
  1. ADVAIR HFA [Suspect]
     Indication: ASTHMA
     Dosage: 1PUFF TWICE PER DAY
     Route: 055
     Dates: start: 20051128
  2. FLOVENT [Suspect]
     Indication: ASTHMA
     Dosage: 2PUFF TWICE PER DAY
     Route: 055
     Dates: start: 20051001, end: 20051128
  3. ATROVENT [Concomitant]
  4. ALBUTEROL [Concomitant]
  5. PROVENTIL [Concomitant]

REACTIONS (7)
  - ABDOMINAL DISTENSION [None]
  - DRUG INEFFECTIVE [None]
  - MOUTH PLAQUE [None]
  - MUSCLE SPASMS [None]
  - STOMATITIS [None]
  - SWELLING [None]
  - WEIGHT INCREASED [None]
